FAERS Safety Report 17226204 (Version 1)
Quarter: 2020Q1

REPORT INFORMATION
  Report Type: Spontaneous
  Country: US (occurrence: US)
  Receive Date: 20200102
  Receipt Date: 20200102
  Transmission Date: 20200409
  Serious: No
  Sender: FDA-Public Use
  Company Number: US-FOUNDATIONCONSUMERHC-2019-US-019310

PATIENT
  Age: 26 Year
  Sex: Female
  Weight: 54.43 kg

DRUGS (1)
  1. TAKE ACTION [Suspect]
     Active Substance: LEVONORGESTREL
     Indication: POST COITAL CONTRACEPTION
     Dosage: 1.5 MG X 3 DOSES
     Route: 048
     Dates: start: 20191002, end: 20191004

REACTIONS (9)
  - Pollakiuria [Unknown]
  - Vaginal discharge [Unknown]
  - Incorrect dosage administered [Recovered/Resolved]
  - Vomiting [Recovered/Resolved]
  - Breast tenderness [Recovered/Resolved]
  - Headache [Recovered/Resolved]
  - Vaginal haemorrhage [Recovered/Resolved]
  - Abdominal pain upper [Not Recovered/Not Resolved]
  - Intentional product misuse [Recovered/Resolved]

NARRATIVE: CASE EVENT DATE: 20191002
